FAERS Safety Report 5375426-2 (Version None)
Quarter: 2007Q2

REPORT INFORMATION
  Report Type: 
  Country: None (occurrence: None)
  Receive Date: 20070629
  Receipt Date: 20070621
  Transmission Date: 20071010
  Serious: Yes (Hospitalization, Other)
  Sender: FDA-Public Use
  Company Number: US-RB-007028-07

PATIENT
  Age: 47 Year

DRUGS (1)
  1. SUBOXONE [Suspect]

REACTIONS (1)
  - DRUG WITHDRAWAL SYNDROME [None]
